FAERS Safety Report 11064774 (Version 2)
Quarter: 2015Q3

REPORT INFORMATION
  Report Type: Spontaneous
  Country: US (occurrence: US)
  Receive Date: 20150424
  Receipt Date: 20150707
  Transmission Date: 20151125
  Serious: No
  Sender: FDA-Public Use
  Company Number: US-009507513-1504USA017563

PATIENT
  Age: 14 Year
  Sex: Female
  Weight: 108.84 kg

DRUGS (3)
  1. NEXPLANON [Suspect]
     Active Substance: ETONOGESTREL
     Indication: MENSTRUAL CYCLE MANAGEMENT
     Dosage: 1 ROD EVERY 3 YEARS
     Route: 059
     Dates: start: 20150413
  2. LORATADINE. [Concomitant]
     Active Substance: LORATADINE
  3. PRILOSEC [Concomitant]
     Active Substance: OMEPRAZOLE MAGNESIUM

REACTIONS (2)
  - Increased appetite [Unknown]
  - Drug administration error [Unknown]

NARRATIVE: CASE EVENT DATE: 20150413
